FAERS Safety Report 9037430 (Version 1)
Quarter: 2013Q1

REPORT INFORMATION
  Report Type: Spontaneous
  Country: US (occurrence: US)
  Receive Date: 20130129
  Receipt Date: 20130129
  Transmission Date: 20140127
  Serious: No
  Sender: FDA-Public Use
  Company Number: US-BIOGENIDEC-2013BI006723

PATIENT
  Age: 35 Year
  Sex: Female

DRUGS (1)
  1. TYSABRI [Suspect]
     Indication: MULTIPLE SCLEROSIS
     Route: 042
     Dates: start: 20120810

REACTIONS (10)
  - Nasal operation [Recovered/Resolved]
  - Epicondylitis [Unknown]
  - Coordination abnormal [Unknown]
  - Paraesthesia [Unknown]
  - Cognitive disorder [Unknown]
  - Feeling abnormal [Unknown]
  - Hypoaesthesia [Unknown]
  - Asthenia [Unknown]
  - Fatigue [Unknown]
  - Infection [Unknown]
